FAERS Safety Report 4601995-3 (Version None)
Quarter: 2005Q1

REPORT INFORMATION
  Report Type: 
  Country: None (occurrence: None)
  Receive Date: 20050201
  Receipt Date: 20041130
  Transmission Date: 20050727
  Serious: Yes (Hospitalization)
  Sender: FDA-Public Use
  Company Number: ACO_0029_2004

PATIENT
  Age: 56 Year
  Sex: Female

DRUGS (5)
  1. ZANAFLEX [Suspect]
     Dosage: 4 MG TID PO
     Route: 048
  2. AMINOPYRIDINE [Concomitant]
  3. REBIF [Concomitant]
  4. MIRAPEX [Concomitant]
  5. ESTROGEN [Concomitant]

REACTIONS (7)
  - ALANINE AMINOTRANSFERASE INCREASED [None]
  - ASPARTATE AMINOTRANSFERASE INCREASED [None]
  - BLOOD BILIRUBIN INCREASED [None]
  - CHROMATURIA [None]
  - JAUNDICE [None]
  - NAUSEA [None]
  - VOMITING [None]
